FAERS Safety Report 8141414-6 (Version None)
Quarter: 2012Q1

REPORT INFORMATION
  Report Type: 
  Country: None (occurrence: None)
  Receive Date: 20120216
  Receipt Date: 20120213
  Transmission Date: 20120608
  Serious: Yes (Death, Hospitalization)
  Sender: FDA-Public Use
  Company Number: PHHY2012JP012893

PATIENT
  Age: 86 Year
  Sex: Female

DRUGS (1)
  1. CYCLOSPORINE [Suspect]
     Dosage: UNK UKN, UNK

REACTIONS (3)
  - ACUTE RESPIRATORY DISTRESS SYNDROME [None]
  - VOCAL CORD PARALYSIS [None]
  - FUNGAL INFECTION [None]
